FAERS Safety Report 6303621-4 (Version None)
Quarter: 2009Q3

REPORT INFORMATION
  Report Type: 
  Country: None (occurrence: None)
  Receive Date: 20090807
  Receipt Date: 20090807
  Transmission Date: 20100115
  Serious: Yes (Other)
  Sender: FDA-Public Use
  Company Number: None

PATIENT
  Age: 62 Year
  Sex: Female
  Weight: 56.246 kg

DRUGS (6)
  1. POSITIVELY AGELESS SPF 70 AVEENO [Suspect]
     Indication: PROPHYLAXIS
     Dosage: NORMAL NECK/CHEST/ARMS/FEET 2X DAILY TOP
     Route: 061
     Dates: start: 20090601, end: 20090806
  2. POSITIVELY AGELESS SPF 70 AVEENO [Suspect]
     Indication: SUNBURN
     Dosage: NORMAL NECK/CHEST/ARMS/FEET 2X DAILY TOP
     Route: 061
     Dates: start: 20090601, end: 20090806
  3. ACTIVE SPF 70 AVEENO [Suspect]
     Indication: PROPHYLAXIS
     Dosage: NORMAL NECK/CHEST/ARMS/FEET 2X DAILY TOP
     Route: 061
     Dates: start: 20090601, end: 20090806
  4. ACTIVE SPF 70 AVEENO [Suspect]
     Indication: SUNBURN
     Dosage: NORMAL NECK/CHEST/ARMS/FEET 2X DAILY TOP
     Route: 061
     Dates: start: 20090601, end: 20090806
  5. ULTIMATE SPORT SPF 70+ NEUTROGENA [Suspect]
     Indication: PROPHYLAXIS
     Dosage: NORMAL NECK/CHEST/ARMS/FEET 2X DAILY TOP
     Route: 061
     Dates: start: 20090601, end: 20090806
  6. ULTIMATE SPORT SPF 70+ NEUTROGENA [Suspect]
     Indication: SUNBURN
     Dosage: NORMAL NECK/CHEST/ARMS/FEET 2X DAILY TOP
     Route: 061
     Dates: start: 20090601, end: 20090806

REACTIONS (3)
  - DRUG HYPERSENSITIVITY [None]
  - INFECTION [None]
  - INFLAMMATION [None]
